FAERS Safety Report 7911718-8 (Version None)
Quarter: 2011Q4

REPORT INFORMATION
  Report Type: 
  Country: None (occurrence: None)
  Receive Date: 20111114
  Receipt Date: 20111114
  Transmission Date: 20120403
  Serious: Yes (Life-Threatening, Other)
  Sender: FDA-Public Use
  Company Number: None

PATIENT
  Age: 50 Year
  Sex: Female
  Weight: 61.234 kg

DRUGS (1)
  1. BEYAZ [Suspect]
     Indication: PREMENSTRUAL SYNDROME
     Dosage: ONE TABLET
     Route: 048
     Dates: start: 20111106, end: 20111109

REACTIONS (5)
  - SUICIDE ATTEMPT [None]
  - NAUSEA [None]
  - MOOD SWINGS [None]
  - VOMITING [None]
  - MUSCLE SPASMS [None]
